FAERS Safety Report 24617803 (Version 3)
Quarter: 2024Q4

REPORT INFORMATION
  Report Type: Report from Study
  Country: CN (occurrence: CN)
  Receive Date: 20241114
  Receipt Date: 20241206
  Transmission Date: 20250115
  Serious: Yes (Hospitalization)
  Sender: SANOFI AVENTIS
  Company Number: CN-SA-2024SA328768

PATIENT
  Age: 31 Year
  Sex: Female
  Weight: 41 kg

DRUGS (9)
  1. OXALIPLATIN [Suspect]
     Active Substance: OXALIPLATIN
     Indication: Colorectal cancer
     Dosage: 85 MG/M2, QOW
     Dates: start: 20240905, end: 20241021
  2. OXALIPLATIN [Suspect]
     Active Substance: OXALIPLATIN
     Route: 042
     Dates: end: 20241021
  3. FLUOROURACIL [Suspect]
     Active Substance: FLUOROURACIL
     Indication: Colorectal cancer
     Dosage: 400 MG/M2, EVERY 2 WEEKS ON DAYS 1, 15 AND 29 OF EACH 6-WEEK CYCLE
     Route: 040
     Dates: start: 20240905, end: 20241021
  4. FLUOROURACIL [Suspect]
     Active Substance: FLUOROURACIL
     Dosage: 2400 MG/M2 (IV OVER 46-48 HOURS) EVERY 2 WEEKS ON DAYS 1, 15 AND 29 OF EACH 6-WEEK CYCLE
     Route: 042
     Dates: start: 202409, end: 20241021
  5. LEUCOVORIN CALCIUM [Suspect]
     Active Substance: LEUCOVORIN CALCIUM
     Indication: Colorectal cancer
     Dosage: 400 MG/M2 EVERY 2 WEEKS
     Dates: start: 20240905, end: 20241021
  6. CETUXIMAB [Suspect]
     Active Substance: CETUXIMAB
     Indication: Colorectal cancer
     Dosage: 400 MG/M2 IV (LOADING DOSE GIVEN AT CYCLE 1 DAY 1)
     Route: 042
     Dates: start: 20240905, end: 20241021
  7. CETUXIMAB [Suspect]
     Active Substance: CETUXIMAB
     Dosage: 250 MG/M2 IV (SUBSEQUENT WEEKLY DOSE DURING EACH 6-WEEK CYCLE)
     Route: 042
     Dates: start: 202409, end: 20241021
  8. LOPERAMIDE [Suspect]
     Active Substance: LOPERAMIDE
     Indication: Colorectal cancer
     Dosage: 2 MG, 1X/DAY
     Route: 048
     Dates: start: 20241028, end: 20241029
  9. LOPERAMIDE [Suspect]
     Active Substance: LOPERAMIDE
     Dosage: 2 MG, BID
     Route: 048
     Dates: start: 20241030, end: 20241105

REACTIONS (1)
  - Gastroenteritis [Recovered/Resolved]

NARRATIVE: CASE EVENT DATE: 20241031
